FAERS Safety Report 24396630 (Version 2)
Quarter: 2024Q4

REPORT INFORMATION
  Report Type: Other
  Country: US (occurrence: US)
  Receive Date: 20241004
  Receipt Date: 20241004
  Transmission Date: 20250114
  Serious: Yes (Other)
  Sender: B BRAUN
  Company Number: US-B.Braun Medical Inc.-2162470

PATIENT
  Age: 32 Year
  Sex: Female
  Weight: 50.4 kg

DRUGS (1)
  1. HEPARIN SODIUM [Suspect]
     Active Substance: HEPARIN SODIUM
     Indication: Thrombosis prophylaxis

REACTIONS (4)
  - Anti factor X activity increased [Unknown]
  - Drug level increased [Unknown]
  - Haemoglobin decreased [Unknown]
  - Activated partial thromboplastin time prolonged [Unknown]
